FAERS Safety Report 10266169 (Version 3)
Quarter: 2014Q4

REPORT INFORMATION
  Report Type: Report from Study
  Country: TR (occurrence: TR)
  Receive Date: 20140627
  Receipt Date: 20141001
  Transmission Date: 20150528
  Serious: Yes (Hospitalization)
  Sender: FDA-Public Use
  Company Number: TR-ABBVIE-14P-161-1252609-00

PATIENT
  Age: 35 Year
  Sex: Female
  Weight: 74 kg

DRUGS (2)
  1. HUMIRA [Suspect]
     Active Substance: ADALIMUMAB
     Indication: ANKYLOSING SPONDYLITIS
     Route: 058
     Dates: start: 20130918, end: 20140527
  2. HUMIRA [Suspect]
     Active Substance: ADALIMUMAB
     Route: 058
     Dates: start: 20140804

REACTIONS (2)
  - Pharyngeal inflammation [Recovered/Resolved]
  - Pharyngeal haemorrhage [Recovered/Resolved]

NARRATIVE: CASE EVENT DATE: 201312
